FAERS Safety Report 12595970 (Version 1)
Quarter: 2016Q3

REPORT INFORMATION
  Report Type: Spontaneous
  Country: US (occurrence: US)
  Receive Date: 20160726
  Receipt Date: 20160726
  Transmission Date: 20161109
  Serious: No
  Sender: FDA-Public Use
  Company Number: US-AMGEN-USASP2016063571

PATIENT
  Age: 69 Year
  Sex: Female

DRUGS (3)
  1. SALINE                             /00075401/ [Concomitant]
     Active Substance: SODIUM CHLORIDE
     Dosage: UNK
  2. DEXTROSE 5% [Concomitant]
     Active Substance: DEXTROSE
     Dosage: 50 ML, UNK
  3. KYPROLIS [Suspect]
     Active Substance: CARFILZOMIB
     Indication: PLASMA CELL MYELOMA
     Dosage: 20 MG/M2 DILUTED IN 50 ML NORMAL SALINE , UNK
     Route: 065
     Dates: start: 20160511

REACTIONS (1)
  - Adverse event [Unknown]

NARRATIVE: CASE EVENT DATE: 201605
